FAERS Safety Report 9797881 (Version 3)
Quarter: 2014Q2

REPORT INFORMATION
  Report Type: Report from Study
  Country: DE (occurrence: DE)
  Receive Date: 20140106
  Receipt Date: 20140521
  Transmission Date: 20141212
  Serious: Yes (Hospitalization, Disabling, Other)
  Sender: FDA-Public Use
  Company Number: PHHY2013DE154455

PATIENT
  Sex: Female
  Weight: 121 kg

DRUGS (10)
  1. FTY 720 [Suspect]
     Indication: RELAPSING-REMITTING MULTIPLE SCLEROSIS
     Dosage: 0.5 MG, QD
     Route: 048
     Dates: start: 20110714, end: 20131005
  2. THYRONAJOD [Concomitant]
     Dosage: 100 UG, EVERY MORNING
     Dates: start: 20110501
  3. TEGRETOL [Concomitant]
     Indication: EPILEPSY
     Dosage: 200 MG, EVERY MORNING
     Route: 048
     Dates: start: 19951001
  4. ATACAND [Concomitant]
     Dosage: 16 MG, EVERY MORNING
     Dates: start: 20061201
  5. VENLAFAXINE [Concomitant]
     Indication: DEPRESSED MOOD
     Dosage: 37.5 MG, QD
     Route: 048
     Dates: start: 20111005
  6. EMSELEX [Concomitant]
     Indication: BLADDER DISORDER
     Dosage: 7.5 MG, QD
     Route: 048
     Dates: start: 20120806, end: 20120929
  7. ASA [Concomitant]
     Dosage: 100 MG, EVERY MORNING
  8. SIMVASTATIN [Concomitant]
     Dosage: 40 MG, EVERY EVENING
  9. AMLODIPINE [Concomitant]
     Dosage: 5 MG, EVERY MORNING
  10. MOVICOL [Concomitant]

REACTIONS (20)
  - Brain stem infarction [Recovering/Resolving]
  - Hemiparesis [Recovering/Resolving]
  - Dysarthria [Recovering/Resolving]
  - Gait disturbance [Unknown]
  - Nystagmus [Unknown]
  - Sensory loss [Unknown]
  - Dysphagia [Unknown]
  - Motor dysfunction [Unknown]
  - Aphasia [Unknown]
  - Fall [Unknown]
  - Multiple sclerosis relapse [Unknown]
  - Visual acuity reduced [Unknown]
  - Blood pressure fluctuation [Unknown]
  - Central nervous system lesion [Unknown]
  - Blood chloride increased [Unknown]
  - Haemoglobin decreased [Unknown]
  - Red blood cell count decreased [Unknown]
  - Blood creatinine decreased [Unknown]
  - Blood thyroid stimulating hormone decreased [Unknown]
  - Fibrin D dimer increased [Unknown]
